FAERS Safety Report 8473253-0 (Version None)
Quarter: 2012Q2

REPORT INFORMATION
  Report Type: 
  Country: None (occurrence: None)
  Receive Date: 20120627
  Receipt Date: 20120622
  Transmission Date: 20120825
  Serious: Yes (Other)
  Sender: FDA-Public Use
  Company Number: JP-MERCK-1206USA04419

PATIENT
  Age: 55 Year
  Sex: Female

DRUGS (5)
  1. ALOXI [Concomitant]
     Route: 065
     Dates: start: 20120409, end: 20120409
  2. FOSAPREPITANT DIMEGLUMINE [Suspect]
     Indication: PROPHYLAXIS OF NAUSEA AND VOMITING
     Route: 041
     Dates: start: 20120409, end: 20120409
  3. CYCLOPHOSPHAMIDE [Concomitant]
     Indication: BREAST CANCER
     Route: 065
     Dates: start: 20120409, end: 20120409
  4. EPIRUBICIN HYDROCHLORIDE [Concomitant]
     Indication: BREAST CANCER
     Route: 065
     Dates: start: 20120409, end: 20120409
  5. DECADRON [Concomitant]
     Route: 065
     Dates: start: 20120409, end: 20120409

REACTIONS (3)
  - INJECTION SITE INDURATION [None]
  - INJECTION SITE PAIN [None]
  - INJECTION SITE ERYTHEMA [None]
